FAERS Safety Report 8014040-7 (Version None)
Quarter: 2011Q4

REPORT INFORMATION
  Report Type: 
  Country: None (occurrence: None)
  Receive Date: 20111229
  Receipt Date: 20111228
  Transmission Date: 20120403
  Serious: Yes (Life-Threatening, Other)
  Sender: FDA-Public Use
  Company Number: ME-BAYER-2011-124159

PATIENT
  Age: 70 Year

DRUGS (1)
  1. ULTRAVIST 370 [Suspect]
     Indication: SCAN

REACTIONS (1)
  - ASPHYXIA [None]
